FAERS Safety Report 19213256 (Version 1)
Quarter: 2021Q2

REPORT INFORMATION
  Report Type: Spontaneous
  Country: CN (occurrence: CN)
  Receive Date: 20210504
  Receipt Date: 20210504
  Transmission Date: 20210717
  Serious: Yes (Life-Threatening, Hospitalization, Other)
  Sender: FDA-Public Use
  Company Number: CN-PFIZER INC-2021444788

PATIENT
  Age: 42 Year
  Sex: Female
  Weight: 59.5 kg

DRUGS (2)
  1. ENDOXAN [CYCLOPHOSPHAMIDE] [Suspect]
     Active Substance: CYCLOPHOSPHAMIDE
     Indication: BREAST CANCER FEMALE
     Dosage: 959.0000 MG, 1X/DAY
     Route: 041
     Dates: start: 20210320, end: 20210320
  2. PHARMORUBICIN [Suspect]
     Active Substance: EPIRUBICIN
     Indication: BREAST CANCER FEMALE
     Dosage: 159.000 MG, 1X/DAY
     Route: 041
     Dates: start: 20210320, end: 20210320

REACTIONS (4)
  - Dizziness [Recovered/Resolved]
  - Myelosuppression [Recovered/Resolved]
  - Pyrexia [Recovered/Resolved]
  - Asthenia [Recovered/Resolved]

NARRATIVE: CASE EVENT DATE: 20210327
